FAERS Safety Report 18590628 (Version 1)
Quarter: 2020Q4

REPORT INFORMATION
  Report Type: Spontaneous
  Country: PK (occurrence: PK)
  Receive Date: 20201208
  Receipt Date: 20201208
  Transmission Date: 20210114
  Serious: Yes (Other)
  Sender: FDA-Public Use
  Company Number: PK-RISING PHARMA HOLDINGS, INC.-2020RIS000261

PATIENT
  Age: 55 Year
  Sex: Female

DRUGS (1)
  1. ESCITALOPRAM OXALATE. [Suspect]
     Active Substance: ESCITALOPRAM OXALATE
     Indication: GENERALISED ANXIETY DISORDER
     Dosage: UNK
     Route: 065

REACTIONS (1)
  - Antidepressant discontinuation syndrome [Recovered/Resolved]
